FAERS Safety Report 5698148-7 (Version None)
Quarter: 2008Q2

REPORT INFORMATION
  Report Type: 
  Country: None (occurrence: None)
  Receive Date: 20080408
  Receipt Date: 20080328
  Transmission Date: 20081010
  Serious: Yes (Hospitalization, Other)
  Sender: FDA-Public Use
  Company Number: US-ELI_LILLY_AND_COMPANY-US200803006845

PATIENT
  Sex: Female
  Weight: 96.145 kg

DRUGS (7)
  1. BYETTA [Suspect]
     Dosage: 5 UG, 2/D
     Route: 058
     Dates: start: 20050101, end: 20050101
  2. BYETTA [Suspect]
     Dosage: 10 UG, 2/D
     Route: 058
     Dates: start: 20050101, end: 20060101
  3. BYETTA [Suspect]
     Dosage: 5 UG, 2/D
     Route: 058
     Dates: start: 20070602, end: 20070701
  4. BYETTA [Suspect]
     Dosage: 10 UG, 2/D
     Route: 058
     Dates: start: 20070701
  5. AMARYL [Concomitant]
     Indication: DIABETES MELLITUS
     Dosage: 1 MG, EACH MORNING
     Dates: start: 20071101
  6. METFORMIN HCL [Concomitant]
     Indication: DIABETES MELLITUS
     Dates: end: 20070501
  7. REGLAN [Concomitant]
     Indication: IRRITABLE BOWEL SYNDROME

REACTIONS (12)
  - BLOOD GLUCOSE DECREASED [None]
  - CONSTIPATION [None]
  - DIARRHOEA [None]
  - DYSPEPSIA [None]
  - FOREIGN BODY TRAUMA [None]
  - INTRASPINAL ABSCESS [None]
  - LIMB INJURY [None]
  - OSTEOMYELITIS [None]
  - SCOLIOSIS [None]
  - SPINAL COLUMN STENOSIS [None]
  - STAPHYLOCOCCAL INFECTION [None]
  - WEIGHT DECREASED [None]
